FAERS Safety Report 24218808 (Version 1)
Quarter: 2024Q3

REPORT INFORMATION
  Report Type: Spontaneous
  Country: US (occurrence: None)
  Receive Date: 20240815
  Receipt Date: 20240815
  Transmission Date: 20241017
  Serious: No
  Sender: Public
  Company Number: None

PATIENT
  Age: 71 Year
  Sex: Female

DRUGS (2)
  1. TASIGNA [Suspect]
     Active Substance: NILOTINIB
     Indication: Chronic myeloid leukaemia
     Dosage: 150 MG TWICE A DAY ORAL
     Route: 048
     Dates: start: 20210210
  2. TASIGNA [Suspect]
     Active Substance: NILOTINIB
     Indication: Philadelphia chromosome positive

REACTIONS (4)
  - Lymphoedema [None]
  - Hip arthroplasty [None]
  - Thrombosis [None]
  - Post procedural complication [None]

NARRATIVE: CASE EVENT DATE: 20240814
